FAERS Safety Report 8824087 (Version 2)
Quarter: 2012Q4

REPORT INFORMATION
  Report Type: 
  Country: US (occurrence: US)
  Receive Date: 20121003
  Receipt Date: 20121031
  Transmission Date: 20130627
  Serious: No
  Sender: FDA-Public Use
  Company Number: US-009507513-1209USA010483

PATIENT
  Sex: Male

DRUGS (2)
  1. PEGINTRON [Suspect]
     Dosage: 150 Microgram, qw
     Dates: start: 201205
  2. RIBASPHERE [Suspect]
     Dosage: 600 mg, bid

REACTIONS (2)
  - Anaemia [Unknown]
  - Drug dose omission [Unknown]
